FAERS Safety Report 25839047 (Version 1)
Quarter: 2025Q3

REPORT INFORMATION
  Report Type: Spontaneous
  Country: US (occurrence: US)
  Receive Date: 20250924
  Receipt Date: 20250924
  Transmission Date: 20251020
  Serious: No
  Sender: NOVARTIS
  Company Number: US-002147023-NVSC2025US144151

PATIENT
  Sex: Male
  Weight: 74 kg

DRUGS (1)
  1. VANRAFIA [Suspect]
     Active Substance: ATRASENTAN HYDROCHLORIDE
     Indication: Haematuria
     Dosage: 0.75 MG, QD
     Route: 048
     Dates: start: 202506, end: 202509

REACTIONS (2)
  - Drug ineffective [Not Recovered/Not Resolved]
  - Product use in unapproved indication [Unknown]
